FAERS Safety Report 7369212-1 (Version None)
Quarter: 2011Q1

REPORT INFORMATION
  Report Type: 
  Country: None (occurrence: None)
  Receive Date: 20110323
  Receipt Date: 20110311
  Transmission Date: 20110831
  Serious: Yes (Death, Other)
  Sender: FDA-Public Use
  Company Number: US-CELGENEUS-163-21880-10101269

PATIENT
  Sex: Male
  Weight: 88.2 kg

DRUGS (46)
  1. METOPROLOL [Concomitant]
     Indication: HYPERTENSION
     Dosage: 200 MILLIGRAM
     Route: 065
  2. SEPTRA [Concomitant]
     Route: 051
  3. NEO-SYNEPHRINOL [Concomitant]
     Indication: HYPOTENSION
     Route: 051
     Dates: start: 20100401
  4. MULTIVITAMINS PLUS MINERALS [Concomitant]
     Dosage: 1 TABLET
     Route: 048
  5. DEXAMETHASONE [Concomitant]
     Indication: MULTIPLE MYELOMA
     Route: 065
     Dates: start: 20071101
  6. LISINOPRIL [Concomitant]
     Indication: HYPERTENSION
     Dosage: 5 MILLIGRAM
     Route: 065
  7. ALBUTEROL SULFATE AND IPRATROPIUM BROMIDE [Concomitant]
     Route: 065
  8. LEVAQUIN [Concomitant]
     Dosage: 250 MILLIGRAM
     Route: 051
  9. MEROPENEM [Concomitant]
     Dosage: 500 MILLIGRAM
     Route: 051
  10. MEROPENEM [Concomitant]
     Dosage: 250 MILLIGRAM
     Route: 051
  11. NYSTATIN [Concomitant]
     Route: 061
  12. PROTONIX [Concomitant]
     Dosage: 40 MILLIGRAM
     Route: 048
  13. URSODIOL [Concomitant]
     Dosage: 300 MILLIGRAM
     Route: 048
  14. REVLIMID [Suspect]
     Indication: MULTIPLE MYELOMA
     Dosage: 25 MILLIGRAM
     Route: 048
     Dates: start: 20071101
  15. REVLIMID [Suspect]
     Dosage: 10 MILLIGRAM
     Route: 048
     Dates: start: 20100405, end: 20100423
  16. RAPAMUNE [Suspect]
     Dosage: 1 MILLIGRAM
     Route: 048
  17. PREDNISONE [Concomitant]
     Dosage: 40 MILLIGRAM
     Route: 065
     Dates: start: 20100216
  18. OXYCODONE [Concomitant]
     Dosage: 5 MILLIGRAM
     Route: 065
  19. ZOMETA [Concomitant]
     Route: 065
  20. NORVASC [Concomitant]
     Indication: HYPERTENSION
     Route: 065
  21. ASPIRIN [Concomitant]
     Indication: PROPHYLAXIS
     Dosage: 81 MILLIGRAM
     Route: 048
  22. MICAFUNGIN [Concomitant]
     Dosage: 150 MILLIGRAM
     Route: 051
  23. REVLIMID [Suspect]
     Dosage: 25MG-15MG
     Route: 048
     Dates: start: 20090801
  24. VITAMIN D [Concomitant]
     Dosage: 1600 IU (INTERNATIONAL UNIT)
     Route: 048
  25. TORSEMIDE [Concomitant]
     Dosage: 20 MILLIGRAM
     Route: 048
  26. PROGRAF [Suspect]
     Dosage: 1 MILLIGRAM
     Route: 048
  27. PREDNISONE [Concomitant]
     Dosage: 1 MILLIGRAM/KILOGRAM
     Route: 048
     Dates: start: 20100514
  28. PREDNISONE [Concomitant]
     Route: 048
  29. BECLOMETHASONE DIPROPIONATE [Concomitant]
     Dosage: 5 MILLILITER
     Route: 048
  30. ZOCOR [Concomitant]
     Dosage: 20 MILLIGRAM
     Route: 065
  31. PRILOSEC [Concomitant]
     Dosage: 20 MILLIGRAM
     Route: 065
  32. SEPTRA [Concomitant]
     Dosage: .5 MILLIGRAM
     Route: 048
  33. RESTORIL [Concomitant]
     Dosage: 50 MILLIGRAM
     Route: 065
  34. HYDRALAZINE [Concomitant]
     Dosage: 10 MILLIGRAM
     Route: 048
  35. ACYCLOVIR [Concomitant]
     Dosage: 800 MILLIGRAM
     Route: 065
  36. REGULAR INSULIN [Concomitant]
     Dosage: 12 IU (INTERNATIONAL UNIT)
     Route: 058
  37. ZOLOFT [Concomitant]
     Indication: DEPRESSION
     Dosage: 50 MILLIGRAM
     Route: 048
  38. BUDESONIDE [Concomitant]
     Dosage: 3 MILLIGRAM
     Route: 048
  39. REVLIMID [Suspect]
     Dosage: 10 MILLIGRAM
     Route: 048
     Dates: start: 20080201
  40. RAPAMUNE [Suspect]
     Dosage: 3 MILLIGRAM
     Route: 048
  41. URSODIOL [Concomitant]
     Dosage: 600 MILLIGRAM
     Route: 048
  42. PREDNISONE [Concomitant]
     Dosage: 10 MILLIGRAM
     Route: 065
  43. PREDNISONE [Concomitant]
     Dosage: 7.5 MILLIGRAM
     Route: 048
     Dates: start: 20100413
  44. LEVOTHYROXINE SODIUM [Concomitant]
     Indication: HYPOTHYROIDISM
     Dosage: 100 MICROGRAM
     Route: 065
     Dates: start: 20100406
  45. VORICONAZOLE [Concomitant]
     Route: 065
     Dates: start: 20100401
  46. CALCIUM PLUS VITAMIN D [Concomitant]
     Dosage: 1 TABLET
     Route: 048

REACTIONS (3)
  - PULMONARY HAEMORRHAGE [None]
  - THROMBOCYTOPENIA [None]
  - THROMBOTIC MICROANGIOPATHY [None]
